FAERS Safety Report 19431055 (Version 1)
Quarter: 2021Q2

REPORT INFORMATION
  Report Type: Spontaneous
  Country: US (occurrence: US)
  Receive Date: 20210618
  Receipt Date: 20210618
  Transmission Date: 20210717
  Serious: No
  Sender: FDA-Public Use
  Company Number: US-ROCHE-2734889

PATIENT
  Sex: Female

DRUGS (2)
  1. ACTEMRA [Suspect]
     Active Substance: TOCILIZUMAB
  2. ACTEMRA [Suspect]
     Active Substance: TOCILIZUMAB
     Indication: VITAMIN B COMPLEX DEFICIENCY
     Dosage: INJECT 162 MG SUBCUTANEOUSLY EVERY WEEK. ONGOING: NOT REPORTED?ACTPEN 162MG 0.9ML SQ
     Route: 058

REACTIONS (3)
  - Intentional product use issue [Unknown]
  - Pruritus [Not Recovered/Not Resolved]
  - Off label use [Unknown]
